FAERS Safety Report 9834517 (Version 1)
Quarter: 2014Q1

REPORT INFORMATION
  Report Type: Spontaneous
  Country: NL (occurrence: NL)
  Receive Date: 20140122
  Receipt Date: 20140122
  Transmission Date: 20141002
  Serious: Yes (Hospitalization)
  Sender: FDA-Public Use
  Company Number: NL-TEVA-456717ISR

PATIENT
  Age: 71 Year
  Sex: Male

DRUGS (9)
  1. AMOXICILLINE CAPSULE 500MG [Suspect]
     Indication: ANTIBIOTIC PROPHYLAXIS
     Dosage: 1500 MILLIGRAM DAILY; 3 TIMES PER DAY 1 PIECE
     Route: 048
     Dates: start: 20140103, end: 20140108
  2. ACENOCOUMAROL TABLET 1MG [Concomitant]
     Dosage: ACCORDING TO THROMBOSIS SERVICE
     Route: 048
  3. PANTOZOL TABLET MSR 40MG [Concomitant]
     Dosage: 40 MILLIGRAM DAILY; 1D 40 MG
     Route: 048
  4. AMLODIPINE TABLET 10MG (BESILAAT) [Concomitant]
     Dosage: 1D 10 MG
     Route: 048
  5. FUROSEMIDE TABLET 20MG [Concomitant]
     Dosage: 20 MILLIGRAM DAILY; 1D 20 MG
     Route: 048
  6. METFORMINE TABLET  500MG [Concomitant]
     Dosage: 500 MILLIGRAM DAILY; 1D 500 MG
     Route: 048
  7. METOPROLOL TABLET MGA 200MG (SUCCINAAT) [Concomitant]
     Dosage: 200 MILLIGRAM DAILY; 1D 200 MG
     Route: 048
  8. SIMVASTATINE TABLET 40MG [Concomitant]
     Dosage: 40 MILLIGRAM DAILY; 1D 40 MG
     Route: 048
  9. ENALAPRIL MALEAAT PCH TABLET 20MG [Concomitant]
     Dosage: 20 MILLIGRAM DAILY; 1DD20MG
     Route: 048

REACTIONS (4)
  - Pyrexia [Unknown]
  - Generalised erythema [Unknown]
  - Urticaria [Unknown]
  - Swelling face [Unknown]
